FAERS Safety Report 16045933 (Version 1)
Quarter: 2019Q1

REPORT INFORMATION
  Report Type: Spontaneous
  Country: US (occurrence: US)
  Receive Date: 20190307
  Receipt Date: 20190307
  Transmission Date: 20190418
  Serious: No
  Sender: FDA-Public Use
  Company Number: US-CELGENEUS-USA-20190209658

PATIENT
  Age: 58 Year
  Sex: Female

DRUGS (2)
  1. FLUOCINONIDE. [Concomitant]
     Active Substance: FLUOCINONIDE
     Indication: PRODUCT USED FOR UNKNOWN INDICATION
     Route: 065
  2. OTEZLA [Suspect]
     Active Substance: APREMILAST
     Indication: PSORIASIS
     Dosage: 60 MILLIGRAM
     Route: 048
     Dates: start: 20180831, end: 201901

REACTIONS (4)
  - Diarrhoea [Recovered/Resolved]
  - Psoriasis [Unknown]
  - Drug effect decreased [Unknown]
  - Rash [Unknown]

NARRATIVE: CASE EVENT DATE: 201808
